FAERS Safety Report 8180596-7 (Version None)
Quarter: 2012Q1

REPORT INFORMATION
  Report Type: 
  Country: None (occurrence: None)
  Receive Date: 20120302
  Receipt Date: 20120216
  Transmission Date: 20120608
  Serious: Yes (Hospitalization, Other)
  Sender: FDA-Public Use
  Company Number: DE-WATSON-2012-02699

PATIENT
  Sex: Female
  Weight: 63 kg

DRUGS (5)
  1. PREDNISOLONE [Suspect]
     Indication: CROHN'S DISEASE
     Dosage: 15 MG, DAILY
     Route: 048
  2. METHYLPREDNISOLONE [Suspect]
     Indication: ANTIINFLAMMATORY THERAPY
     Dosage: HIGH DOSE, NO MORE DETAILS
     Route: 065
     Dates: start: 20090126, end: 20090205
  3. REMICADE [Suspect]
     Indication: CROHN'S DISEASE
     Dosage: 300 MG, EVERY 8 WEEK
     Route: 042
  4. FEMIBION 800 FOLSAURE + METABOLIN [Suspect]
     Indication: PROPHYLAXIS OF NEURAL TUBE DEFECT
     Dosage: 0.4 MG, DAILY
     Route: 048
  5. AZATHIOPRINE [Suspect]
     Indication: CROHN'S DISEASE
     Dosage: 150 [MG/D ]/WEEK 0-4.3 AND 18-27.5
     Route: 048
     Dates: start: 20080726

REACTIONS (2)
  - HELLP SYNDROME [None]
  - PREMATURE SEPARATION OF PLACENTA [None]
